FAERS Safety Report 7830203-5 (Version None)
Quarter: 2011Q4

REPORT INFORMATION
  Report Type: 
  Country: None (occurrence: None)
  Receive Date: 20111021
  Receipt Date: 20111012
  Transmission Date: 20120403
  Serious: Yes (Hospitalization, Other)
  Sender: FDA-Public Use
  Company Number: PHHY2011CA88144

PATIENT
  Sex: Female

DRUGS (5)
  1. LITHIUM CITRATE [Suspect]
  2. LITHIUM CITRATE [Suspect]
  3. VALPROATE SODIUM [Concomitant]
  4. RISPERIDONE [Concomitant]
  5. CLOZARIL [Suspect]
     Indication: SCHIZOPHRENIA
     Route: 048
     Dates: start: 20020926

REACTIONS (1)
  - TOXICITY TO VARIOUS AGENTS [None]
